FAERS Safety Report 9649638 (Version 1)
Quarter: 2013Q4

REPORT INFORMATION
  Report Type: Spontaneous
  Country: US (occurrence: US)
  Receive Date: 20131028
  Receipt Date: 20131028
  Transmission Date: 20140711
  Serious: Yes (Other)
  Sender: FDA-Public Use
  Company Number: ALCN2013US005331

PATIENT
  Age: 68 Year
  Sex: Male

DRUGS (1)
  1. BETADINE [Suspect]
     Indication: PREOPERATIVE CARE
     Dosage: UNK GTT, UNK
     Route: 047
     Dates: start: 201309

REACTIONS (3)
  - Punctate keratitis [Unknown]
  - Corneal opacity [Unknown]
  - Eye pain [Unknown]
